FAERS Safety Report 4884600-0 (Version None)
Quarter: 2006Q1

REPORT INFORMATION
  Report Type: 
  Country: None (occurrence: None)
  Receive Date: 20060117
  Receipt Date: 20060106
  Transmission Date: 20060701
  Serious: Yes (Death, Life-Threatening)
  Sender: FDA-Public Use
  Company Number: MK200512-0125-2

PATIENT
  Age: 79 Year
  Sex: Female

DRUGS (19)
  1. NEUTROSPEC [Suspect]
     Indication: OSTEOMYELITIS
     Dosage: 20 MCI, ONE TIME, IV
     Route: 042
     Dates: start: 20051109, end: 20051109
  2. HEPARIN [Concomitant]
  3. DULCOLAX [Concomitant]
  4. COLACE [Concomitant]
  5. SENNA [Concomitant]
  6. PREVACID [Concomitant]
  7. REGLAN [Concomitant]
  8. LASIX [Concomitant]
  9. ZOCOR [Concomitant]
  10. ACCUZYME [Concomitant]
  11. METOPROLOL [Concomitant]
  12. EPOGEN [Concomitant]
  13. SIMVASTATIN [Concomitant]
  14. VICODIN [Concomitant]
  15. MORPHINE [Concomitant]
  16. CEFEPIME [Concomitant]
  17. FLAGYL [Concomitant]
  18. OXYGEN [Concomitant]
  19. DIABETIC DIET [Concomitant]

REACTIONS (8)
  - BLOOD PRESSURE DECREASED [None]
  - CARDIAC ARREST [None]
  - DYSPNOEA [None]
  - HEART RATE DECREASED [None]
  - LOSS OF CONSCIOUSNESS [None]
  - OXYGEN SATURATION DECREASED [None]
  - POST PROCEDURAL COMPLICATION [None]
  - RENAL FAILURE CHRONIC [None]
